FAERS Safety Report 20415509 (Version 2)
Quarter: 2022Q1

REPORT INFORMATION
  Report Type: Spontaneous
  Country: HR (occurrence: HR)
  Receive Date: 20220202
  Receipt Date: 20220316
  Transmission Date: 20220423
  Serious: Yes (Other)
  Sender: FDA-Public Use
  Company Number: HR-NOVARTISPH-NVSC2022HR015031

PATIENT
  Age: 54 Year

DRUGS (2)
  1. DABRAFENIB [Suspect]
     Active Substance: DABRAFENIB
     Indication: Adjuvant therapy
     Dosage: 2 DOSAGE FORM (2X 150 MG)
     Route: 048
     Dates: start: 20191218, end: 20201207
  2. TRAMETINIB [Suspect]
     Active Substance: TRAMETINIB
     Indication: Adjuvant therapy
     Dosage: 2 MG, QD
     Route: 048
     Dates: start: 20191218, end: 20201207

REACTIONS (1)
  - Disease progression [Not Recovered/Not Resolved]

NARRATIVE: CASE EVENT DATE: 20220118
